FAERS Safety Report 7743295-9 (Version None)
Quarter: 2011Q3

REPORT INFORMATION
  Report Type: 
  Country: None (occurrence: None)
  Receive Date: 20110912
  Receipt Date: 20110905
  Transmission Date: 20111222
  Serious: Yes (Life-Threatening, Hospitalization, Other)
  Sender: FDA-Public Use
  Company Number: DE-ELI_LILLY_AND_COMPANY-DE201108006297

PATIENT
  Age: 53 Year
  Sex: Female

DRUGS (8)
  1. PANTOPRAZOLE [Concomitant]
  2. ALIMTA [Suspect]
     Indication: LUNG ADENOCARCINOMA
     Dosage: 775 MG, UNKNOWN
     Route: 042
     Dates: start: 20110615
  3. FOLIC ACID [Concomitant]
     Dosage: 5 MG, QD
  4. DEXAMETHASONE [Concomitant]
     Indication: METASTASES TO CENTRAL NERVOUS SYSTEM
  5. LEVOTHYROXINE SODIUM [Concomitant]
  6. VIT B12 [Concomitant]
     Dosage: 1 MG, MONTHLY (1/M)
     Route: 058
  7. CISPLATIN [Concomitant]
     Indication: LUNG ADENOCARCINOMA
     Dosage: 116 MG, UNKNOWN
     Route: 065
     Dates: start: 20110615
  8. CITALOPRAM HYDROBROMIDE [Concomitant]

REACTIONS (1)
  - DERMATITIS [None]
